FAERS Safety Report 8499546-9 (Version None)
Quarter: 2012Q3

REPORT INFORMATION
  Report Type: 
  Country: None (occurrence: None)
  Receive Date: 20120710
  Receipt Date: 20120704
  Transmission Date: 20120928
  Serious: Yes (Other)
  Sender: FDA-Public Use
  Company Number: AU-JNJFOC-20120614055

PATIENT
  Sex: Male
  Weight: 114 kg

DRUGS (2)
  1. STELARA [Suspect]
     Indication: PSORIASIS
     Route: 058
     Dates: start: 20111219
  2. METHOTREXATE [Suspect]
     Indication: PRODUCT USED FOR UNKNOWN INDICATION
     Route: 065

REACTIONS (6)
  - MALAISE [None]
  - MEMORY IMPAIRMENT [None]
  - PRESYNCOPE [None]
  - COLD SWEAT [None]
  - DIZZINESS [None]
  - ARTHRALGIA [None]
